FAERS Safety Report 15821443 (Version 1)
Quarter: 2019Q1

REPORT INFORMATION
  Report Type: Spontaneous
  Country: US (occurrence: US)
  Receive Date: 20190113
  Receipt Date: 20190113
  Transmission Date: 20190417
  Serious: Yes (Other)
  Sender: FDA-Public Use
  Company Number: None

PATIENT
  Age: 40 Year
  Sex: Female
  Weight: 85.5 kg

DRUGS (2)
  1. MULTIVITAMIN [Concomitant]
     Active Substance: VITAMINS
  2. CYMBALTA [Suspect]
     Active Substance: DULOXETINE HYDROCHLORIDE
     Indication: FIBROMYALGIA
     Dosage: ?          QUANTITY:1 CAPSULE(S);?
     Route: 048

REACTIONS (10)
  - Frustration tolerance decreased [None]
  - Withdrawal syndrome [None]
  - Quality of life decreased [None]
  - Hyperhidrosis [None]
  - Feeling abnormal [None]
  - Vertigo [None]
  - Dizziness [None]
  - Impaired driving ability [None]
  - Balance disorder [None]
  - Memory impairment [None]

NARRATIVE: CASE EVENT DATE: 20190113
